FAERS Safety Report 21953364 (Version 1)
Quarter: 2023Q1

REPORT INFORMATION
  Report Type: Spontaneous
  Country: US (occurrence: US)
  Receive Date: 20230204
  Receipt Date: 20230204
  Transmission Date: 20230418
  Serious: Yes (Other)
  Sender: FDA-Public Use
  Company Number: US-Accord-298593

PATIENT

DRUGS (1)
  1. CISPLATIN [Suspect]
     Active Substance: CISPLATIN
     Indication: Head and neck cancer

REACTIONS (2)
  - Pulmonary mass [Unknown]
  - Off label use [Unknown]
